FAERS Safety Report 14224190 (Version 1)
Quarter: 2017Q4

REPORT INFORMATION
  Report Type: Spontaneous
  Country: US (occurrence: US)
  Receive Date: 20171126
  Receipt Date: 20171126
  Transmission Date: 20180321
  Serious: Yes (Other)
  Sender: FDA-Public Use
  Company Number: US-CELGENEUS-USA-20171106145

PATIENT

DRUGS (3)
  1. CARFILZOMIB [Suspect]
     Active Substance: CARFILZOMIB
     Indication: LYMPHOMA
     Route: 041
  2. REVLIMID [Concomitant]
     Active Substance: LENALIDOMIDE
     Indication: LYMPHOMA
     Dosage: 15 MILLIGRAM
     Route: 048
  3. ISTODAX [Suspect]
     Active Substance: ROMIDEPSIN
     Indication: LYMPHOMA
     Route: 041

REACTIONS (15)
  - Gastrointestinal haemorrhage [Unknown]
  - Dyspnoea [Unknown]
  - Oedema [Unknown]
  - Cardiac failure [Unknown]
  - Thrombocytopenia [Unknown]
  - Febrile neutropenia [Unknown]
  - Anaemia [Unknown]
  - Neutropenia [Unknown]
  - Deep vein thrombosis [Unknown]
  - Vomiting [Unknown]
  - Pyrexia [Unknown]
  - Hypotension [Unknown]
  - Infection [Unknown]
  - Diarrhoea [Unknown]
  - Asthenia [Unknown]
